FAERS Safety Report 4395425-7 (Version None)
Quarter: 2004Q3

REPORT INFORMATION
  Report Type: 
  Country: None (occurrence: None)
  Receive Date: 20040707
  Receipt Date: 20040623
  Transmission Date: 20050211
  Serious: Yes (Death)
  Sender: FDA-Public Use
  Company Number: 04P-087-0263312-00

PATIENT
  Age: 53 Year
  Sex: Male
  Weight: 65 kg

DRUGS (9)
  1. OMNICEF [Suspect]
     Indication: TONSILLITIS
     Dosage: 100 MG, 3 IN 1 D, ORAL
     Route: 048
     Dates: start: 20010725, end: 20010727
  2. VOLTAREN [Suspect]
     Indication: ANALGESIC THERAPY
     Dosage: 25 MG, 3 IN 1 D, ORAL
     Route: 048
     Dates: start: 20010725, end: 20010727
  3. SALICYLAMIDE [Concomitant]
  4. TEPRENONE [Concomitant]
  5. FLOMOXEF SODIUM [Concomitant]
  6. GLUCOSE [Concomitant]
  7. CYANOCOBALAMIN [Concomitant]
  8. ASCORBIC ACID [Concomitant]
  9. DEXAMETHASONE ACETATE [Concomitant]

REACTIONS (2)
  - MULTI-ORGAN FAILURE [None]
  - TOXIC EPIDERMAL NECROLYSIS [None]
